FAERS Safety Report 6917271-X (Version None)
Quarter: 2010Q3

REPORT INFORMATION
  Report Type: 
  Country: None (occurrence: None)
  Receive Date: 20100810
  Receipt Date: 20100803
  Transmission Date: 20110219
  Serious: Yes (Hospitalization, Disabling)
  Sender: FDA-Public Use
  Company Number: US-MERCK-0704USA05889

PATIENT
  Age: 71 Year
  Sex: Female
  Weight: 63 kg

DRUGS (6)
  1. FOSAMAX [Suspect]
     Indication: OSTEOPENIA
     Route: 048
     Dates: start: 20010531
  2. FOSAMAX [Suspect]
     Route: 048
     Dates: start: 19971015
  3. FOSAMAX [Suspect]
     Route: 048
     Dates: start: 20020517
  4. FOSAMAX [Suspect]
     Route: 048
     Dates: start: 19981001, end: 20010530
  5. LEVOXYL [Concomitant]
     Route: 065
  6. [THERAPY UNSPECIFIED] [Concomitant]
     Indication: BLOOD PRESSURE
     Route: 065
     Dates: start: 19970101

REACTIONS (28)
  - ARTHRALGIA [None]
  - BLOOD CHOLESTEROL INCREASED [None]
  - BONE DENSITY DECREASED [None]
  - CARPAL TUNNEL SYNDROME [None]
  - CATARACT [None]
  - CORONARY ARTERY DISEASE [None]
  - DENTAL CARIES [None]
  - FALL [None]
  - HEAD AND NECK CANCER [None]
  - HYPERCHOLESTEROLAEMIA [None]
  - HYPERTENSION [None]
  - HYPOACUSIS [None]
  - INTERMITTENT CLAUDICATION [None]
  - INTRAOCULAR LENS IMPLANT [None]
  - JAW FRACTURE [None]
  - LUMBAR SPINAL STENOSIS [None]
  - MACULAR DEGENERATION [None]
  - NERVE INJURY [None]
  - NO THERAPEUTIC RESPONSE [None]
  - OSTEONECROSIS OF JAW [None]
  - PELVIC MASS [None]
  - RADICULOPATHY [None]
  - REFLUX OESOPHAGITIS [None]
  - SPINAL COLUMN STENOSIS [None]
  - SYNOVIAL CYST [None]
  - TOOTH INFECTION [None]
  - URINARY BLADDER ATROPHY [None]
  - URINARY TRACT INFECTION [None]
